FAERS Safety Report 16543502 (Version 1)
Quarter: 2019Q3

REPORT INFORMATION
  Report Type: Spontaneous
  Country: NL (occurrence: NL)
  Receive Date: 20190709
  Receipt Date: 20190709
  Transmission Date: 20191004
  Serious: Yes (Hospitalization)
  Sender: FDA-Public Use
  Company Number: NL-ACCORD-137535

PATIENT
  Age: 59 Year
  Sex: Female
  Weight: 85.3 kg

DRUGS (12)
  1. OMEPRAZOLE. [Concomitant]
     Active Substance: OMEPRAZOLE
     Dosage: ORAL, 1DD (THE PATIENT TAKES THIS DIFFERENTLY: 40 MG, ORAL, 1X PER DAY, INDICATIONS: CG)
  2. METOCLOPRAMIDE. [Concomitant]
     Active Substance: METOCLOPRAMIDE
     Dosage: STRENGTH: 10 MG ORAL, ZN 3DD
  3. POTASSIUM CHLORIDE. [Concomitant]
     Active Substance: POTASSIUM CHLORIDE
     Dosage: STRENGTH: 1,200 MG ORAL, 3DD
  4. PARACETAMOL [Concomitant]
     Active Substance: ACETAMINOPHEN
     Dosage: STRENGTH: 1,000 MG,ORAL, ZN 3DD
  5. GLUCOSE/GLUCOSE MONOHYDRATE/GLUCOSE OXIDASE [Concomitant]
     Dosage: 550 ML INFUSION EVERY 3 WEEKS
  6. LOSARTAN. [Concomitant]
     Active Substance: LOSARTAN
     Dosage: STRENGTH: 25 MG ORAL, FOR THE NIGHT
  7. OXALIPLATIN. [Suspect]
     Active Substance: OXALIPLATIN
     Indication: COLON CANCER
     Dosage: STRENGTH: 5 MG / ML, 250 MG IN GLUCOSE 5% 550 ML INFUSION EVERY 3 WEEKS
     Dates: start: 20190522
  8. CETOMACROGOL 1000/CHLOROCRESOL [Concomitant]
     Dosage: 4X DAYLIFE AFTER1 YEAR SHELF LIFE,BEFORE USE READ PACKAGE LEAFLET 4X DAILY HANDS AND FEET
  9. CAPECITABINE. [Concomitant]
     Active Substance: CAPECITABINE
     Dosage: STRENGTH:1,000 MG /M2 ORAL, 2DD
  10. TRAMADOL. [Concomitant]
     Active Substance: TRAMADOL
     Dosage: ORAL,3DD (PATIENT TAKES DIFFERENTLY:50 MG, ORAL, NECESSARY.
  11. DEXAMETHASONE. [Concomitant]
     Active Substance: DEXAMETHASONE
     Dosage: STRENGTH: 8 MG ORAL, 1DD
  12. COLECALCIFEROL [Concomitant]
     Active Substance: CHOLECALCIFEROL
     Dosage: STRENGTH: 25,000 IU?ORAL, 1X PER 4 WEEKS

REACTIONS (4)
  - Dizziness [Unknown]
  - Muscular weakness [Recovered/Resolved]
  - Muscle spasms [Recovered/Resolved]
  - Hypoaesthesia [Unknown]

NARRATIVE: CASE EVENT DATE: 20190522
